FAERS Safety Report 7219584-3 (Version None)
Quarter: 2011Q1

REPORT INFORMATION
  Report Type: 
  Country: None (occurrence: None)
  Receive Date: 20110111
  Receipt Date: 20110107
  Transmission Date: 20110831
  Serious: Yes (Hospitalization)
  Sender: FDA-Public Use
  Company Number: US-ABBOTT-11P-163-0696199-00

PATIENT
  Sex: Male
  Weight: 108.96 kg

DRUGS (12)
  1. FUROSEMIDE [Concomitant]
     Indication: HYPERTENSION
  2. NIASPAN [Suspect]
     Dates: start: 20100901
  3. NAPROXEN [Concomitant]
     Indication: PRODUCT USED FOR UNKNOWN INDICATION
  4. ATENOLOL [Concomitant]
     Indication: HYPERTENSION
  5. EFFIENT [Concomitant]
     Indication: PRODUCT USED FOR UNKNOWN INDICATION
  6. AZOR [Concomitant]
     Indication: HYPERTENSION
  7. ALLOPURINOL [Concomitant]
     Indication: GOUT
  8. FINASTERIDE [Concomitant]
     Indication: PRODUCT USED FOR UNKNOWN INDICATION
  9. NIASPAN [Suspect]
     Indication: HYPERLIPIDAEMIA
     Dates: start: 20100601, end: 20100901
  10. LIPITOR [Concomitant]
     Indication: BLOOD CHOLESTEROL INCREASED
  11. POTASSIUM [Concomitant]
     Indication: MINERAL SUPPLEMENTATION
  12. LOSARTAN POTASSIUM [Concomitant]
     Indication: HYPERTENSION

REACTIONS (6)
  - ERYTHEMA [None]
  - CORONARY ARTERIAL STENT INSERTION [None]
  - FLUSHING [None]
  - NEPHROLITHIASIS [None]
  - PROSTATOMEGALY [None]
  - SKIN BURNING SENSATION [None]
